FAERS Safety Report 6156957-4 (Version None)
Quarter: 2009Q2

REPORT INFORMATION
  Report Type: 
  Country: None (occurrence: None)
  Receive Date: 20090416
  Receipt Date: 20090407
  Transmission Date: 20091009
  Serious: Yes (Other)
  Sender: FDA-Public Use
  Company Number: B0569415A

PATIENT
  Age: 14 Year
  Sex: Male

DRUGS (2)
  1. SERETIDE DISKUS [Suspect]
     Indication: ASTHMA
     Dosage: 1PUFF TWICE PER DAY
     Route: 055
  2. GROWTH HORMONE [Concomitant]
     Indication: CHONDROECTODERMAL DYSPLASIA
     Route: 065

REACTIONS (2)
  - BONE DENSITY DECREASED [None]
  - PULMONARY HYPERTENSION [None]
